FAERS Safety Report 8119552-3 (Version None)
Quarter: 2012Q1

REPORT INFORMATION
  Report Type: 
  Country: None (occurrence: None)
  Receive Date: 20120207
  Receipt Date: 20120201
  Transmission Date: 20120608
  Serious: Yes (Other)
  Sender: FDA-Public Use
  Company Number: PHEH2012US002982

PATIENT
  Age: 68 Year
  Sex: Female

DRUGS (6)
  1. ZOMETA [Suspect]
     Dosage: 4 MG, UNK
     Dates: start: 20081101
  2. ZOMETA [Suspect]
     Dosage: 4 MG, UNK
     Dates: start: 20100201
  3. ZOMETA [Suspect]
     Dosage: 4 MG, UNK
     Dates: start: 20090101
  4. ZOMETA [Suspect]
     Dosage: 4 MG, UNK
     Dates: start: 20090501
  5. ZOMETA [Suspect]
     Dosage: 4 MG, UNK
     Dates: start: 20090701
  6. STEROIDS NOS [Concomitant]

REACTIONS (1)
  - OSTEONECROSIS OF JAW [None]
